FAERS Safety Report 6409303-2 (Version None)
Quarter: 2009Q4

REPORT INFORMATION
  Report Type: 
  Country: None (occurrence: None)
  Receive Date: 20091021
  Receipt Date: 20091013
  Transmission Date: 20100525
  Serious: Yes (Hospitalization, Other)
  Sender: FDA-Public Use
  Company Number: US-AMGEN-QUU367251

PATIENT
  Sex: Female

DRUGS (7)
  1. ENBREL [Suspect]
     Indication: SJOGREN'S SYNDROME
     Route: 058
     Dates: start: 19990101, end: 20070101
  2. TRAMADOL HCL [Concomitant]
     Route: 048
  3. HYDROCHLOROTHIAZIDE [Concomitant]
     Route: 048
  4. CHROMIUM PICOLINATE [Concomitant]
  5. ENALAPRIL MALEATE [Concomitant]
     Route: 048
  6. LYRICA [Concomitant]
     Route: 048
  7. TRAMADOL HCL [Concomitant]
     Route: 048

REACTIONS (19)
  - ALOPECIA [None]
  - CARPAL TUNNEL SYNDROME [None]
  - DIZZINESS [None]
  - DYSPNOEA [None]
  - EYE DISORDER [None]
  - FATIGUE [None]
  - FOLLICULITIS [None]
  - GENITAL INFECTION FEMALE [None]
  - HEADACHE [None]
  - HYPERTENSION [None]
  - IMPAIRED HEALING [None]
  - JOINT SWELLING [None]
  - LOSS OF LIBIDO [None]
  - OSTEOARTHRITIS [None]
  - PAIN [None]
  - POOR QUALITY SLEEP [None]
  - VAGINAL HAEMORRHAGE [None]
  - VASCULITIS [None]
  - WEIGHT INCREASED [None]
